FAERS Safety Report 13663089 (Version 2)
Quarter: 2017Q2

REPORT INFORMATION
  Report Type: Report from Study
  Country: DE (occurrence: DE)
  Receive Date: 20170619
  Receipt Date: 20170628
  Transmission Date: 20170830
  Serious: Yes (Hospitalization)
  Sender: FDA-Public Use
  Company Number: DE-ROCHE-1950580

PATIENT
  Sex: Female

DRUGS (11)
  1. SIMVASTATIN. [Concomitant]
     Active Substance: SIMVASTATIN
     Indication: PROPHYLAXIS
     Route: 048
  2. AMLODIPINE [Concomitant]
     Active Substance: AMLODIPINE BESYLATE
     Indication: HYPERTENSION
     Route: 048
  3. PREDNISOLONE. [Suspect]
     Active Substance: PREDNISOLONE
     Indication: B-CELL LYMPHOMA
     Dosage: Q/4, DATE OF LAST CYCLE OF PREDNISOLONE PRIOR TO THE SAE: 01/JUN/2017
     Route: 065
     Dates: start: 20170601
  4. LEVOTHYROXINE SODIUM. [Concomitant]
     Active Substance: LEVOTHYROXINE SODIUM
     Indication: HYPOTHYROIDISM
     Route: 048
  5. BISOPROLOL [Concomitant]
     Active Substance: BISOPROLOL
     Indication: HYPERTENSION
     Route: 048
  6. ALLOPURINOL. [Concomitant]
     Active Substance: ALLOPURINOL
     Indication: PROPHYLAXIS
     Route: 048
  7. PEGFILGRASTIM [Suspect]
     Active Substance: PEGFILGRASTIM
     Indication: B-CELL LYMPHOMA
     Dosage: Q/4
     Route: 058
     Dates: start: 20170601
  8. VINCRISTINE [Suspect]
     Active Substance: VINCRISTINE
     Indication: B-CELL LYMPHOMA
     Dosage: Q/4, DATE OF LAST CYCLE OF VINCRISTINE PRIOR TO THE SAE: 01/JUN/2017?LIPOSOMAL
     Route: 042
     Dates: start: 20170601
  9. RITUXIMAB [Suspect]
     Active Substance: RITUXIMAB
     Indication: B-CELL LYMPHOMA
     Dosage: Q/4, RECENT DATE OF RITUXIMAB CYCLE NO: 2 PRIOR TO THE SAE: 13/JUN/2017
     Route: 042
     Dates: start: 20170531
  10. CYCLOPHOSPHAMIDE. [Suspect]
     Active Substance: CYCLOPHOSPHAMIDE
     Indication: B-CELL LYMPHOMA
     Dosage: Q/4, DATE OF LAST CYCLE OF CYCLOPHOSPHAMIDE PRIOR TO THE SAE: 01/JUN/2017
     Route: 042
     Dates: start: 20170601
  11. DOXORUBICINE [Suspect]
     Active Substance: DOXORUBICIN
     Indication: B-CELL LYMPHOMA
     Dosage: Q/4, DATE OF LAST CYCLE OF DOXORUBICINE PRIOR TO THE SAE: 01/JUN/2017
     Route: 042
     Dates: start: 20170601

REACTIONS (1)
  - Hyponatraemia [Recovered/Resolved]

NARRATIVE: CASE EVENT DATE: 20170613
